FAERS Safety Report 8225450-7 (Version None)
Quarter: 2012Q1

REPORT INFORMATION
  Report Type: 
  Country: None (occurrence: None)
  Receive Date: 20120321
  Receipt Date: 20120316
  Transmission Date: 20120608
  Serious: No
  Sender: FDA-Public Use
  Company Number: US-TEVA-328734USA

PATIENT
  Sex: Female

DRUGS (7)
  1. COPAXONE [Suspect]
     Indication: MULTIPLE SCLEROSIS
     Route: 058
     Dates: start: 20080716
  2. ALPRAZOLAM [Concomitant]
  3. FAMCICLOVIR [Concomitant]
  4. PHENTERMINE [Concomitant]
  5. ESCITALOPRAM OXALATE [Concomitant]
  6. AMITRIPTYLINE HCL [Concomitant]
  7. NITROFURANTOIN [Concomitant]

REACTIONS (1)
  - LYMPHADENOPATHY [None]
